FAERS Safety Report 20371001 (Version 1)
Quarter: 2022Q1

REPORT INFORMATION
  Report Type: Spontaneous
  Country: US (occurrence: US)
  Receive Date: 20220124
  Receipt Date: 20220124
  Transmission Date: 20220424
  Serious: No
  Sender: FDA-Public Use
  Company Number: US-ORGANON-O2201USA001443

PATIENT
  Sex: Female
  Weight: 95.4 kg

DRUGS (1)
  1. NEXPLANON [Suspect]
     Active Substance: ETONOGESTREL
     Dosage: 68 MG ROD (1 IMPLANT)
     Route: 059
     Dates: start: 20210622

REACTIONS (2)
  - Jaundice [Not Recovered/Not Resolved]
  - Liver function test increased [Not Recovered/Not Resolved]
